FAERS Safety Report 8294904-X (Version None)
Quarter: 2012Q2

REPORT INFORMATION
  Report Type: 
  Country: None (occurrence: None)
  Receive Date: 20120418
  Receipt Date: 20120416
  Transmission Date: 20120825
  Serious: Yes (Other)
  Sender: FDA-Public Use
  Company Number: US-TEVA-317725USA

PATIENT
  Sex: Female

DRUGS (2)
  1. PROPACET 100 [Suspect]
     Indication: PAIN MANAGEMENT
  2. PROPOXYPHENE NAPSYLATE W/ ACETAMINOPHEN [Suspect]
     Indication: PAIN MANAGEMENT
     Dates: start: 20090101, end: 20101101

REACTIONS (1)
  - CARDIAC DISORDER [None]
